FAERS Safety Report 7428472-9 (Version None)
Quarter: 2011Q2

REPORT INFORMATION
  Report Type: 
  Country: None (occurrence: None)
  Receive Date: 20110413
  Receipt Date: 20110328
  Transmission Date: 20111010
  Serious: Yes (Hospitalization)
  Sender: FDA-Public Use
  Company Number: 2011-00353

PATIENT
  Age: 34 Year
  Sex: Female
  Weight: 56.24 kg

DRUGS (4)
  1. ZYRTEC [Suspect]
     Indication: MULTIPLE ALLERGIES
     Dosage: 10 MG (10 MG, 1 IN 1 D), PER ORAL
     Route: 048
  2. HYDROCODONE BITARTRATE + ACETAMINOPHEN [Suspect]
     Indication: PAIN
     Dosage: 5/500MG, PER ORAL
     Route: 048
  3. SERTRALINE HYDROCHLORIDE [Suspect]
     Indication: ANXIETY
     Dosage: 100 MG (100 MG, 1 IN 1 D), PER ORAL
     Route: 048
     Dates: start: 20100809, end: 20101020
  4. SERTRALINE HYDROCHLORIDE [Suspect]
     Indication: DEPRESSION
     Dosage: 100 MG (100 MG, 1 IN 1 D), PER ORAL
     Route: 048
     Dates: start: 20100809, end: 20101020

REACTIONS (6)
  - SPEECH DISORDER [None]
  - SUICIDAL IDEATION [None]
  - OVERDOSE [None]
  - SUICIDE ATTEMPT [None]
  - IMPAIRED WORK ABILITY [None]
  - HALLUCINATION [None]
